FAERS Safety Report 13314402 (Version 3)
Quarter: 2017Q2

REPORT INFORMATION
  Report Type: Spontaneous
  Country: US (occurrence: US)
  Receive Date: 20170309
  Receipt Date: 20170411
  Transmission Date: 20170830
  Serious: Yes (Other)
  Sender: FDA-Public Use
  Company Number: US-JAZZ-2017-US-002422

PATIENT
  Age: 19 Year
  Sex: Female

DRUGS (5)
  1. MODAFINIL. [Concomitant]
     Active Substance: MODAFINIL
     Indication: NARCOLEPSY
  2. IRON [Concomitant]
     Active Substance: IRON
  3. XYREM [Suspect]
     Active Substance: SODIUM OXYBATE
     Indication: CATAPLEXY
  4. RITALIN [Concomitant]
     Active Substance: METHYLPHENIDATE HYDROCHLORIDE
  5. XYREM [Suspect]
     Active Substance: SODIUM OXYBATE
     Indication: NARCOLEPSY
     Dosage: 2.25 G, BID
     Route: 048
     Dates: start: 20170216

REACTIONS (6)
  - Nausea [Recovered/Resolved]
  - Insomnia [Unknown]
  - Diarrhoea [Unknown]
  - Vomiting [Unknown]
  - Loss of consciousness [Recovered/Resolved]
  - Dysgeusia [Not Recovered/Not Resolved]

NARRATIVE: CASE EVENT DATE: 20170216
